FAERS Safety Report 5726078-0 (Version None)
Quarter: 2008Q2

REPORT INFORMATION
  Report Type: 
  Country: None (occurrence: None)
  Receive Date: 20080502
  Receipt Date: 20080422
  Transmission Date: 20081010
  Serious: Yes (Hospitalization)
  Sender: FDA-Public Use
  Company Number: US-AMGEN-QUU272964

PATIENT
  Sex: Male
  Weight: 77.2 kg

DRUGS (8)
  1. ENBREL [Suspect]
     Indication: RHEUMATOID ARTHRITIS
     Route: 058
     Dates: start: 20050519, end: 20080228
  2. METHOTREXATE [Suspect]
     Route: 048
     Dates: start: 19920101, end: 20080229
  3. NAPRELAN [Suspect]
     Dates: start: 19980101, end: 20080229
  4. GLUCOPHAGE [Concomitant]
     Dates: start: 20050107, end: 20080229
  5. ALLOPURINOL [Concomitant]
     Dates: start: 20041112, end: 20080229
  6. PREVACID [Concomitant]
     Dates: start: 19980101, end: 20080229
  7. DARVOCET-N [Concomitant]
     Dates: start: 19910101, end: 20080229
  8. MICROZIDE [Concomitant]
     Dates: start: 20060622, end: 20080229

REACTIONS (13)
  - BRONCHIECTASIS [None]
  - DEPENDENCE ON RESPIRATOR [None]
  - DISSEMINATED INTRAVASCULAR COAGULATION [None]
  - ENTEROCOCCAL INFECTION [None]
  - ESCHERICHIA INFECTION [None]
  - HIATUS HERNIA [None]
  - NEPHROLITHIASIS [None]
  - PANCREATITIS NECROTISING [None]
  - PLATELET COUNT DECREASED [None]
  - RENAL FAILURE [None]
  - RESPIRATORY FAILURE [None]
  - WHITE BLOOD CELL COUNT INCREASED [None]
  - WOUND INFECTION [None]
